FAERS Safety Report 9861353 (Version 2)
Quarter: 2014Q1

REPORT INFORMATION
  Report Type: Spontaneous
  Country: FI (occurrence: FI)
  Receive Date: 20140203
  Receipt Date: 20140207
  Transmission Date: 20141002
  Serious: Yes (Other)
  Sender: FDA-Public Use
  Company Number: FI-AMGEN-FINSP2014006644

PATIENT
  Age: 61 Year
  Sex: Female

DRUGS (3)
  1. ENBREL [Suspect]
     Indication: PSORIATIC ARTHROPATHY
     Dosage: 50 MG, WEEKLY
     Route: 058
     Dates: start: 20130123, end: 20140124
  2. TREXAN                             /00113801/ [Concomitant]
     Indication: PSORIATIC ARTHROPATHY
     Dosage: 10 MG, WEEKLY
     Route: 048
     Dates: end: 20130527
  3. PREDNISOLON                        /00016201/ [Concomitant]
     Indication: PSORIATIC ARTHROPATHY
     Dosage: 0-10 MG, 1X/DAY

REACTIONS (5)
  - Myelodysplastic syndrome [Unknown]
  - White blood cell count decreased [Unknown]
  - Trisomy 8 [Unknown]
  - C-reactive protein increased [Unknown]
  - Pyrexia [Unknown]
